FAERS Safety Report 8811477 (Version 1)
Quarter: 2012Q4

REPORT INFORMATION
  Report Type: Spontaneous
  Country: US (occurrence: None)
  Receive Date: 20120925
  Receipt Date: 20120925
  Transmission Date: 20130627
  Serious: Yes (Other)
  Sender: FDA-Public Use
  Company Number: None

PATIENT
  Age: 77 Year
  Sex: Female

DRUGS (1)
  1. ANASTROZOLE [Suspect]
     Indication: CANCER
     Dosage: 1 mg once daily oral
     Route: 048
     Dates: start: 20120908, end: 20120918

REACTIONS (8)
  - Nausea [None]
  - Fatigue [None]
  - Discomfort [None]
  - Musculoskeletal chest pain [None]
  - Headache [None]
  - Tremor [None]
  - Visual impairment [None]
  - Eating disorder [None]
